FAERS Safety Report 24244131 (Version 1)
Quarter: 2024Q3

REPORT INFORMATION
  Report Type: Spontaneous
  Country: FR (occurrence: FR)
  Receive Date: 20240823
  Receipt Date: 20240823
  Transmission Date: 20241016
  Serious: Yes (Other)
  Sender: ORGANON
  Company Number: None

PATIENT
  Age: 70 Year
  Sex: Female

DRUGS (22)
  1. MOMETASONE FUROATE [Suspect]
     Active Substance: MOMETASONE FUROATE
     Dosage: 100 ?G, QD
     Route: 048
     Dates: start: 20180305
  2. MOMETASONE FUROATE [Suspect]
     Active Substance: MOMETASONE FUROATE
     Dosage: 50 MICROGRAM PER GRAM
     Route: 048
     Dates: start: 20180305
  3. ACETYLCYSTEINE [Suspect]
     Active Substance: ACETYLCYSTEINE
     Indication: Bronchitis
     Dosage: 200 MG, QD
     Route: 048
     Dates: start: 20180305, end: 20180309
  4. ACETYLCYSTEINE [Suspect]
     Active Substance: ACETYLCYSTEINE
     Dosage: 40 MG, QD
     Route: 048
     Dates: start: 20180305, end: 20180309
  5. ACETYLCYSTEINE [Suspect]
     Active Substance: ACETYLCYSTEINE
     Dosage: 400 MG, QD
     Route: 048
     Dates: start: 20180305, end: 20180309
  6. AMOXICILLIN [Suspect]
     Active Substance: AMOXICILLIN
     Indication: Bronchitis
     Dosage: 1 G, QD
     Route: 048
     Dates: start: 20180305, end: 20180310
  7. AMOXICILLIN [Suspect]
     Active Substance: AMOXICILLIN
     Dosage: 3 GRAM, QD
     Dates: start: 20180305
  8. ACETAMINOPHEN [Suspect]
     Active Substance: ACETAMINOPHEN
     Indication: Bronchitis
     Dosage: 3 GRAM, 1 DAY
     Route: 048
     Dates: start: 20180305, end: 20180310
  9. ACETAMINOPHEN [Suspect]
     Active Substance: ACETAMINOPHEN
     Dosage: 3 GRAM PER GRAM
     Route: 048
     Dates: start: 20180305, end: 20180310
  10. ACETAMINOPHEN [Suspect]
     Active Substance: ACETAMINOPHEN
     Dosage: 1 GRAM, QD
     Route: 048
     Dates: start: 20180305, end: 20180310
  11. OXOMEMAZINE [Suspect]
     Active Substance: OXOMEMAZINE
     Indication: Bronchitis
     Dosage: 160 MG, QD
     Route: 048
     Dates: start: 20180305, end: 20180310
  12. OXOMEMAZINE [Suspect]
     Active Substance: OXOMEMAZINE
     Dosage: 1 G, QD
     Route: 048
     Dates: start: 20180305, end: 20180310
  13. PREDNISONE [Suspect]
     Active Substance: PREDNISONE
     Indication: Bronchitis
     Dosage: 40 MG, QD
     Route: 048
     Dates: start: 20180305, end: 20180307
  14. AMOXICILLIN [Suspect]
     Active Substance: AMOXICILLIN
     Indication: Bronchitis
     Dosage: 3 UNK
     Dates: start: 20180305
  15. AMOXICILLIN [Suspect]
     Active Substance: AMOXICILLIN
     Dosage: 1 G, QD
     Route: 048
     Dates: start: 20180305, end: 20180310
  16. PREDNISONE [Suspect]
     Active Substance: PREDNISONE
     Indication: Bronchitis
     Dosage: 1 G, QD
     Route: 048
     Dates: start: 20180305, end: 20180310
  17. ACETAMINOPHEN [Suspect]
     Active Substance: ACETAMINOPHEN
     Indication: Bronchitis
     Dosage: 3 GRAM PER GRAM, QD
     Route: 048
     Dates: start: 20180305, end: 20180310
  18. ACETAMINOPHEN [Suspect]
     Active Substance: ACETAMINOPHEN
     Dosage: 3 G
     Route: 048
     Dates: start: 20180305, end: 20180310
  19. LEVOTHYROXINE [Concomitant]
     Active Substance: LEVOTHYROXINE\LEVOTHYROXINE SODIUM
     Dosage: UNK
  20. LEVOTHYROXINE [Concomitant]
     Active Substance: LEVOTHYROXINE\LEVOTHYROXINE SODIUM
     Dosage: UNK
  21. OXAZEPAM [Concomitant]
     Active Substance: OXAZEPAM
     Dosage: UNK
  22. OXAZEPAM [Concomitant]
     Active Substance: OXAZEPAM
     Dosage: UNK

REACTIONS (4)
  - Pruritus [Recovered/Resolved]
  - Skin burning sensation [Recovered/Resolved]
  - Rash maculo-papular [Recovered/Resolved]
  - Rash [Recovered/Resolved]

NARRATIVE: CASE EVENT DATE: 20190309
